FAERS Safety Report 7214526-9 (Version None)
Quarter: 2010Q4

REPORT INFORMATION
  Report Type: 
  Country: None (occurrence: None)
  Receive Date: 20101126
  Receipt Date: 20091202
  Transmission Date: 20110411
  Serious: Yes (Other)
  Sender: FDA-Public Use
  Company Number: WAES 0904USA00418

PATIENT
  Age: 49 Year
  Sex: Female

DRUGS (5)
  1. FOSAMAX [Suspect]
     Indication: OSTEOPOROSIS
     Dosage: PO ; 5 MG/DAILY/PO ;  70 MG/WKY/PO
     Route: 048
     Dates: start: 20000627, end: 20060301
  2. FOSAMAX [Suspect]
     Indication: OSTEOPOROSIS
     Dosage: PO ; 5 MG/DAILY/PO ;  70 MG/WKY/PO
     Route: 048
     Dates: start: 19930420
  3. FOSAMAX [Suspect]
     Indication: OSTEOPOROSIS
     Dosage: PO ; 5 MG/DAILY/PO ;  70 MG/WKY/PO
     Route: 048
     Dates: start: 20000627
  4. PROZAC [Concomitant]
  5. HORMONES (UNSPECIFIED) [Concomitant]

REACTIONS (17)
  - ANXIETY [None]
  - CERVICAL POLYP [None]
  - COLONIC POLYP [None]
  - CONSTIPATION [None]
  - DENTAL CARIES [None]
  - FAECAL INCONTINENCE [None]
  - FATIGUE [None]
  - FOOT FRACTURE [None]
  - GINGIVAL INFECTION [None]
  - HYPERLIPIDAEMIA [None]
  - JOINT INJURY [None]
  - MENOPAUSE [None]
  - OSTEOMYELITIS [None]
  - PERIODONTITIS [None]
  - RESORPTION BONE INCREASED [None]
  - SKIN LESION [None]
  - SMEAR CERVIX ABNORMAL [None]
